FAERS Safety Report 5311085-2 (Version None)
Quarter: 2007Q2

REPORT INFORMATION
  Report Type: 
  Country: None (occurrence: None)
  Receive Date: 20070423
  Receipt Date: 20070413
  Transmission Date: 20071010
  Serious: Yes (Hospitalization)
  Sender: FDA-Public Use
  Company Number: 2007SP006906

PATIENT
  Age: 77 Year
  Sex: Male

DRUGS (15)
  1. NITRO-DUR [Suspect]
     Indication: DRUG USE FOR UNKNOWN INDICATION
  2. DONEPEZIL HCL [Suspect]
     Indication: DRUG USE FOR UNKNOWN INDICATION
     Dosage: 5 MG; QD;
  3. METOPROLOL TARTRATE [Suspect]
     Indication: DRUG USE FOR UNKNOWN INDICATION
  4. FERROUS GLUCONATE [Concomitant]
  5. SENNA FRUIT [Concomitant]
  6. OXYCOCET [Concomitant]
  7. ACETYLSALICYLIC ACID SRT [Concomitant]
  8. FLOVENT [Concomitant]
  9. LIPITOR [Concomitant]
  10. DOCUSATE [Concomitant]
  11. PANTOPRAZOLE [Concomitant]
  12. EZETROL [Concomitant]
  13. ALTACE [Concomitant]
  14. ALLOPURINOL [Concomitant]
  15. LORAZEPAM [Concomitant]

REACTIONS (7)
  - ANAEMIA [None]
  - BODY TEMPERATURE DECREASED [None]
  - BRADYCARDIA [None]
  - HYPOTENSION [None]
  - LOSS OF CONSCIOUSNESS [None]
  - PNEUMONIA [None]
  - SYNCOPE [None]
